FAERS Safety Report 25930696 (Version 4)
Quarter: 2025Q4

REPORT INFORMATION
  Report Type: Report from Study
  Country: US (occurrence: US)
  Receive Date: 20251016
  Receipt Date: 20251121
  Transmission Date: 20260118
  Serious: Yes (Hospitalization)
  Sender: MIRUM PHARMACEUTICALS
  Company Number: US-MIRUM PHARMACEUTICALS, INC.-US-MIR-25-00737

PATIENT

DRUGS (16)
  1. LIVMARLI [Suspect]
     Active Substance: MARALIXIBAT CHLORIDE
     Indication: Alagille syndrome
     Dosage: 375.6 MICROGRAM/KILOGRAM, QD (12-MONTH VISIT)
     Route: 048
     Dates: start: 20250403, end: 202507
  2. LIVMARLI [Suspect]
     Active Substance: MARALIXIBAT CHLORIDE
     Dosage: 322.2 MICROGRAM/KILOGRAM, QD (6-MONTH VISIT)
     Route: 048
     Dates: start: 20240530
  3. LIVMARLI [Suspect]
     Active Substance: MARALIXIBAT CHLORIDE
     Dosage: 381 MICROGRAM/KILOGRAM, QD
     Route: 048
     Dates: start: 20240106
  4. LIVMARLI [Suspect]
     Active Substance: MARALIXIBAT CHLORIDE
     Dosage: 19.5 MICROGRAM/KILOGRAM, QD
     Route: 048
     Dates: start: 20221116
  5. NALTREXONE [Concomitant]
     Active Substance: NALTREXONE
     Indication: Pruritus
     Dosage: 12.5 MILLIGRAM, BID
     Route: 048
     Dates: start: 20240416
  6. HYDROXYZINE [Concomitant]
     Active Substance: HYDROXYZINE HYDROCHLORIDE
     Indication: Pruritus
     Dosage: 2.4 MILLIGRAM, Q6H PRN
     Route: 048
     Dates: start: 20240223
  7. HYDROXYZINE [Concomitant]
     Active Substance: HYDROXYZINE HYDROCHLORIDE
     Dosage: 1.2 MILLILITER, Q6H PRN
     Route: 048
     Dates: start: 20221116
  8. ERGOCALCIFEROL [Concomitant]
     Active Substance: ERGOCALCIFEROL
     Indication: Vitamin D deficiency
     Dosage: 0.5 MILLILITER, TID (4000 UNITS TOTAL), DROPS
     Route: 048
     Dates: start: 2024
  9. RIFAMPIN [Concomitant]
     Active Substance: RIFAMPIN
     Indication: Pruritus
     Dosage: 2.6 MILLILITER, QD
     Route: 048
     Dates: start: 2024
  10. RIFAMPIN [Concomitant]
     Active Substance: RIFAMPIN
     Dosage: 2.5 MILLILITER, QD
     Route: 048
     Dates: start: 20230512
  11. VITAMIN E [Concomitant]
     Active Substance: .ALPHA.-TOCOPHEROL
     Indication: Vitamin E deficiency
     Dosage: 800 INTERNATIONAL UNIT, QD, OIL
     Route: 048
     Dates: start: 2024
  12. VITAMIN E [Concomitant]
     Active Substance: .ALPHA.-TOCOPHEROL
     Dosage: 0.5 MILLILITER, QD (25 UNITS TOTAL)
     Route: 048
     Dates: start: 20240220
  13. VITAMIN E [Concomitant]
     Active Substance: .ALPHA.-TOCOPHEROL
     Dosage: 1 MILLILITER, QD (400 UNITS TOTAL)
     Route: 048
     Dates: start: 20230512
  14. URSODIOL [Concomitant]
     Active Substance: URSODIOL
     Indication: Liver disorder
     Dosage: 90 MILLIGRAM, BID
     Route: 048
  15. URSODIOL [Concomitant]
     Active Substance: URSODIOL
     Indication: Pruritus
     Dosage: 87.5 MILLIGRAM, BID
     Route: 048
     Dates: start: 2024
  16. URSODIOL [Concomitant]
     Active Substance: URSODIOL
     Dosage: 1.6 MILLILITER, BID
     Route: 048
     Dates: start: 20230512

REACTIONS (1)
  - Liver transplant [Recovered/Resolved]

NARRATIVE: CASE EVENT DATE: 20250717
